FAERS Safety Report 5831249-9 (Version None)
Quarter: 2008Q3

REPORT INFORMATION
  Report Type: 
  Country: None (occurrence: None)
  Receive Date: 20080801
  Receipt Date: 20080725
  Transmission Date: 20090109
  Serious: Yes (Hospitalization, Other)
  Sender: FDA-Public Use
  Company Number: BR-PFIZER INC-2007105849

PATIENT
  Sex: Male
  Weight: 80 kg

DRUGS (5)
  1. LIPITOR [Suspect]
     Indication: BLOOD TRIGLYCERIDES ABNORMAL
     Route: 048
  2. LIPITOR [Suspect]
     Indication: HYPERCHOLESTEROLAEMIA
  3. PAROXETINE HCL [Concomitant]
     Indication: PANIC DISORDER
  4. RIVOTRIL [Concomitant]
     Indication: ANXIETY
  5. AAS [Concomitant]

REACTIONS (7)
  - ARTERIAL OCCLUSIVE DISEASE [None]
  - COMPLICATIONS OF TRANSPLANT SURGERY [None]
  - DEPRESSION [None]
  - HEPATITIS B [None]
  - LIVER DISORDER [None]
  - SPIDER NAEVUS [None]
  - VENOUS OCCLUSION [None]
